FAERS Safety Report 10239937 (Version 1)
Quarter: 2014Q2

REPORT INFORMATION
  Report Type: Spontaneous
  Country: US (occurrence: US)
  Receive Date: 20140616
  Receipt Date: 20140616
  Transmission Date: 20141212
  Serious: No
  Sender: FDA-Public Use
  Company Number: US-GILEAD-2014-0105332

PATIENT
  Sex: Female

DRUGS (13)
  1. LETAIRIS [Suspect]
     Indication: PULMONARY ARTERIAL HYPERTENSION
     Dosage: 10 MG, QD
     Route: 065
     Dates: start: 20110107
  2. REMODULIN [Suspect]
     Indication: PRODUCT USED FOR UNKNOWN INDICATION
     Route: 058
  3. COUMADIN                           /00014802/ [Concomitant]
  4. KEPPRA [Concomitant]
  5. LIDODERM [Concomitant]
  6. VITAMIN B 6 [Concomitant]
  7. VITAMIN B12 NOS [Concomitant]
  8. VENTAVIS [Concomitant]
  9. POTASSIUM [Concomitant]
  10. MIRAPEX [Concomitant]
  11. BYETTA [Concomitant]
  12. CENTRUM SILVER                     /02363801/ [Concomitant]
  13. BECONASE [Concomitant]

REACTIONS (2)
  - Fluid retention [Not Recovered/Not Resolved]
  - Dyspnoea [Not Recovered/Not Resolved]
